FAERS Safety Report 19416299 (Version 1)
Quarter: 2021Q2

REPORT INFORMATION
  Report Type: Spontaneous
  Country: DE (occurrence: DE)
  Receive Date: 20210614
  Receipt Date: 20210614
  Transmission Date: 20210717
  Serious: Yes (Other)
  Sender: FDA-Public Use
  Company Number: DE-009507513-2106DEU002444

PATIENT
  Age: 15 Year
  Sex: Female

DRUGS (10)
  1. GABAPENTIN. [Concomitant]
     Active Substance: GABAPENTIN
     Indication: PRODUCT USED FOR UNKNOWN INDICATION
     Dosage: 10 MILLIGRAM/KILOGRAM, TID (3 PER DAY)
     Route: 065
  2. PARACETAMOL [Concomitant]
     Active Substance: ACETAMINOPHEN
     Indication: PRODUCT USED FOR UNKNOWN INDICATION
     Dosage: 10 MILLIGRAM/KILOGRAM, TID (3 PER DAY)
     Route: 065
  3. MORPHINE [Concomitant]
     Active Substance: MORPHINE
     Indication: PRODUCT USED FOR UNKNOWN INDICATION
     Dosage: 0.6 MILLIGRAM/KILOGRAM, OD
     Route: 065
  4. LOPERAMIDE [Concomitant]
     Active Substance: LOPERAMIDE
     Indication: PRODUCT USED FOR UNKNOWN INDICATION
     Dosage: UNK
     Route: 065
  5. CEPHALOSPORIN C [Concomitant]
     Active Substance: CEPHALOSPORIN C
     Indication: PRODUCT USED FOR UNKNOWN INDICATION
     Dosage: UNK
     Route: 065
  6. IRINOTECAN [Suspect]
     Active Substance: IRINOTECAN
     Indication: NEUROBLASTOMA
     Dosage: 50 MILLIGRAM/SQ. METER (OVER 90 MIN)
     Route: 065
     Dates: start: 20210328
  7. QARZIBA [Suspect]
     Active Substance: DINUTUXIMAB BETA
     Indication: NEUROBLASTOMA
     Dosage: 10 MILLIGRAM/SQ. METER (OVER 10 DAYS)
     Route: 065
     Dates: start: 20210328
  8. FENISTIL [Concomitant]
     Active Substance: DIMETHINDENE
     Indication: PRODUCT USED FOR UNKNOWN INDICATION
     Dosage: 0.1 MILLIGRAM/KILOGRAM, TID (3 PER DAY)
     Route: 065
  9. ATROPINE. [Concomitant]
     Active Substance: ATROPINE
     Indication: PRODUCT USED FOR UNKNOWN INDICATION
     Dosage: UNK
     Route: 065
  10. TEMOZOLOMIDE. [Suspect]
     Active Substance: TEMOZOLOMIDE
     Indication: NEUROBLASTOMA
     Dosage: 100 MILLIGRAM/SQ. METER (OVER 5 DAYS)
     Route: 065
     Dates: start: 20210328

REACTIONS (9)
  - Pain [Unknown]
  - Rash [Unknown]
  - Thrombocytopenia [Unknown]
  - Blood pressure abnormal [Unknown]
  - Pyrexia [Unknown]
  - Diarrhoea [Unknown]
  - Anaemia [Unknown]
  - Oedema [Unknown]
  - Oliguria [Unknown]
